FAERS Safety Report 8473806-X (Version None)
Quarter: 2012Q2

REPORT INFORMATION
  Report Type: 
  Country: None (occurrence: None)
  Receive Date: 20120628
  Receipt Date: 20111227
  Transmission Date: 20120825
  Serious: Yes (Death)
  Sender: FDA-Public Use
  Company Number: US-MYLANLABS-2011S1024158

PATIENT
  Age: 72 Year
  Sex: Male

DRUGS (16)
  1. CLOZAPINE [Suspect]
     Route: 048
  2. RIVASTIGMINE [Concomitant]
  3. GLIPIZIDE [Concomitant]
  4. ACTOS [Concomitant]
  5. LORATADINE [Concomitant]
  6. LITHIUM CARBONATE [Concomitant]
  7. GLUCOSAMINE [Concomitant]
  8. DESMOPRESSIN ACETATE [Concomitant]
  9. VITAMIN TAB [Concomitant]
  10. TRAMADOL HCL [Concomitant]
  11. DIOVAN [Concomitant]
  12. CLOZAPINE [Suspect]
     Indication: SCHIZOPHRENIA
     Route: 048
  13. OXYBUTYNIN [Concomitant]
  14. NAMENDA [Concomitant]
  15. SIMVASTATIN [Concomitant]
  16. METOPROLOL TARTRATE [Concomitant]

REACTIONS (1)
  - MYOCARDIAL INFARCTION [None]
